FAERS Safety Report 20962206 (Version 1)
Quarter: 2022Q2

REPORT INFORMATION
  Report Type: Spontaneous
  Country: US (occurrence: None)
  Receive Date: 20220612
  Receipt Date: 20220612
  Transmission Date: 20220721
  Serious: Yes (Death)
  Sender: FDA-Public Use
  Company Number: None

PATIENT
  Age: 33 Year
  Sex: Male
  Weight: 90 kg

DRUGS (10)
  1. 4-AMINO-3-PHENYLBUTYRIC ACID [Suspect]
     Active Substance: 4-AMINO-3-PHENYLBUTYRIC ACID
     Indication: Social anxiety disorder
     Dosage: FREQUENCY : TWICE A DAY;?
     Route: 048
     Dates: start: 20190630, end: 20220128
  2. 4-AMINO-3-PHENYLBUTYRIC ACID [Suspect]
     Active Substance: 4-AMINO-3-PHENYLBUTYRIC ACID
     Indication: Product substitution
  3. 4-AMINO-3-PHENYLBUTYRIC ACID [Suspect]
     Active Substance: 4-AMINO-3-PHENYLBUTYRIC ACID
     Indication: Product substitution
  4. TIANEPTINE [Suspect]
     Active Substance: TIANEPTINE
     Indication: Anxiety
     Dosage: FREQUENCY : 3 TIMES A DAY;?
     Route: 048
     Dates: start: 20190630, end: 20220128
  5. TIANEPTINE [Suspect]
     Active Substance: TIANEPTINE
     Indication: Product substitution
  6. TIANEPTINE [Suspect]
     Active Substance: TIANEPTINE
     Indication: Product substitution
  7. WELLBUTRIN [Concomitant]
     Active Substance: BUPROPION HYDROCHLORIDE
  8. VITAMIN B12 [Concomitant]
     Active Substance: CYANOCOBALAMIN
  9. VITAMINS [Concomitant]
     Active Substance: VITAMINS
  10. THIAMINE [Concomitant]
     Active Substance: THIAMINE

REACTIONS (9)
  - Seizure [None]
  - Drug abuser [None]
  - Loss of consciousness [None]
  - Withdrawal syndrome [None]
  - Loss of consciousness [None]
  - Head injury [None]
  - Foot fracture [None]
  - Injury [None]
  - Cardiomegaly [None]

NARRATIVE: CASE EVENT DATE: 20220128
